FAERS Safety Report 6539878-4 (Version None)
Quarter: 2010Q1

REPORT INFORMATION
  Report Type: 
  Country: None (occurrence: None)
  Receive Date: 20100115
  Receipt Date: 20100108
  Transmission Date: 20100710
  Serious: Yes (Other)
  Sender: FDA-Public Use
  Company Number: US-JNJCH-2010000529

PATIENT
  Age: 50 Year
  Sex: Male
  Weight: 81.6 kg

DRUGS (1)
  1. LISTERINE TOTAL CARE ANTICAVITY MOUTHWASH CINNAMINT [Suspect]
     Indication: DRUG USE FOR UNKNOWN INDICATION
     Dosage: TEXT:TWICE DAILY - AS DIRECTED
     Route: 048

REACTIONS (1)
  - APPLICATION SITE BURN [None]
